FAERS Safety Report 8040472-7 (Version None)
Quarter: 2012Q1

REPORT INFORMATION
  Report Type: 
  Country: None (occurrence: None)
  Receive Date: 20120111
  Receipt Date: 20111229
  Transmission Date: 20120608
  Serious: No
  Sender: FDA-Public Use
  Company Number: US-AMGEN-USASP2011068600

PATIENT
  Sex: Female

DRUGS (3)
  1. MELOXICAM [Concomitant]
     Indication: RHEUMATOID ARTHRITIS
     Dosage: 15 MG, DAILY
     Route: 048
  2. ENBREL [Suspect]
     Indication: RHEUMATOID ARTHRITIS
     Dosage: 50 MG, QWK
     Dates: start: 20081111
  3. DEMEROL [Concomitant]
     Indication: HYPERTENSION
     Dosage: 46 MG, DAILY
     Dates: start: 20091001

REACTIONS (1)
  - SINUSITIS [None]
